FAERS Safety Report 6616246-8 (Version None)
Quarter: 2010Q1

REPORT INFORMATION
  Report Type: 
  Country: None (occurrence: None)
  Receive Date: 20100305
  Receipt Date: 20100224
  Transmission Date: 20100710
  Serious: Yes (Hospitalization)
  Sender: FDA-Public Use
  Company Number: IT-JNJFOC-20100204013

PATIENT
  Sex: Female

DRUGS (9)
  1. HALDOL [Suspect]
     Indication: PSYCHOMOTOR HYPERACTIVITY
     Route: 048
  2. HALDOL [Suspect]
     Route: 048
  3. TALOFEN [Suspect]
     Indication: PSYCHOMOTOR HYPERACTIVITY
     Route: 048
  4. LANSOPRAZOLE [Concomitant]
     Indication: DRUG USE FOR UNKNOWN INDICATION
     Route: 048
  5. XALATAN [Concomitant]
     Indication: DRUG USE FOR UNKNOWN INDICATION
     Route: 047
  6. BETOPTIC [Concomitant]
     Indication: DRUG USE FOR UNKNOWN INDICATION
     Route: 047
  7. AZOPT [Concomitant]
     Indication: DRUG USE FOR UNKNOWN INDICATION
     Route: 047
  8. KARVEA [Concomitant]
     Indication: DRUG USE FOR UNKNOWN INDICATION
     Route: 048
  9. ASPIRIN [Concomitant]
     Indication: DRUG USE FOR UNKNOWN INDICATION
     Route: 048

REACTIONS (3)
  - DEHYDRATION [None]
  - DRUG TOXICITY [None]
  - SOPOR [None]
